FAERS Safety Report 24949436 (Version 2)
Quarter: 2025Q1

REPORT INFORMATION
  Report Type: Report from Study
  Country: US (occurrence: US)
  Receive Date: 20250210
  Receipt Date: 20250214
  Transmission Date: 20250409
  Serious: Yes (Hospitalization)
  Sender: ABBVIE
  Company Number: US-ABBVIE-6124493

PATIENT
  Sex: Female

DRUGS (1)
  1. SKYRIZI [Suspect]
     Active Substance: RISANKIZUMAB-RZAA
     Indication: Product used for unknown indication
     Route: 058
     Dates: start: 20240913

REACTIONS (6)
  - Norovirus infection [Unknown]
  - Urinary tract infection [Unknown]
  - Asthenia [Unknown]
  - Nausea [Unknown]
  - Abdominal discomfort [Unknown]
  - Hypophagia [Unknown]
